FAERS Safety Report 4400055-4 (Version None)
Quarter: 2004Q3

REPORT INFORMATION
  Report Type: 
  Country: None (occurrence: None)
  Receive Date: 20040716
  Receipt Date: 20020904
  Transmission Date: 20050211
  Serious: Yes (Life-Threatening, Disabling, Other)
  Sender: FDA-Public Use
  Company Number: US-MERCK-0209USA00435

PATIENT
  Age: 55 Year
  Sex: Male
  Weight: 91 kg

DRUGS (11)
  1. VICODIN [Concomitant]
     Route: 065
     Dates: start: 20000601
  2. ANTINEOPLASTIC (UNSPECIFIED) [Suspect]
     Indication: NON-HODGKIN'S LYMPHOMA
     Route: 065
  3. FLEXERIL [Concomitant]
     Indication: INTERVERTEBRAL DISC DEGENERATION
     Route: 048
  4. FLEXERIL [Concomitant]
     Indication: BACK INJURY
     Route: 048
  5. MECLOMEN [Concomitant]
     Route: 065
     Dates: end: 20000725
  6. PRILOSEC [Concomitant]
     Route: 065
  7. VIOXX [Suspect]
     Indication: BACK PAIN
     Route: 048
     Dates: start: 20000601, end: 20000719
  8. VIOXX [Suspect]
     Route: 048
     Dates: end: 20011101
  9. VIOXX [Suspect]
     Route: 048
     Dates: start: 20000720
  10. VITAMINS (UNSPECIFIED) [Concomitant]
     Route: 065
  11. AMBIEN [Concomitant]
     Route: 065

REACTIONS (11)
  - ABDOMINAL DISCOMFORT [None]
  - CARDIAC FAILURE CONGESTIVE [None]
  - CARDIOMYOPATHY [None]
  - DIFFUSE LARGE B-CELL LYMPHOMA RECURRENT [None]
  - DISTURBANCE IN ATTENTION [None]
  - EJECTION FRACTION DECREASED [None]
  - GASTRIC DISORDER [None]
  - MAJOR DEPRESSION [None]
  - SEBORRHOEIC KERATOSIS [None]
  - SLEEP DISORDER [None]
  - UPPER RESPIRATORY TRACT INFECTION [None]
